FAERS Safety Report 4977270-4 (Version None)
Quarter: 2006Q2

REPORT INFORMATION
  Report Type: 
  Country: None (occurrence: None)
  Receive Date: 20060419
  Receipt Date: 20060313
  Transmission Date: 20061013
  Serious: Yes (Hospitalization)
  Sender: FDA-Public Use
  Company Number: US-MERCK-0603USA02254

PATIENT
  Age: 71 Year
  Sex: Female
  Weight: 75 kg

DRUGS (48)
  1. LEVAQUIN [Concomitant]
     Route: 065
  2. WARFARIN [Concomitant]
     Route: 065
  3. TOPROL-XL [Concomitant]
     Route: 065
  4. VIOXX [Suspect]
     Indication: PAIN MANAGEMENT
     Route: 048
     Dates: start: 20011106, end: 20040930
  5. VIOXX [Suspect]
     Indication: ARTHRITIS
     Route: 048
     Dates: start: 20011106, end: 20040930
  6. MELATONINA [Concomitant]
     Route: 065
  7. CALCET [Concomitant]
     Route: 065
  8. POTASSIUM GLUCONATE [Concomitant]
     Route: 065
  9. AMITRIPTYLIN [Concomitant]
     Route: 065
  10. LIBRIUM [Concomitant]
     Route: 065
  11. DARVOCET [Concomitant]
     Route: 065
  12. PLAQUENIL [Concomitant]
     Route: 065
  13. PRINZIDE [Concomitant]
     Route: 065
  14. LEVOXYL [Concomitant]
     Route: 065
  15. PREMARIN [Concomitant]
     Route: 065
  16. PREVACID [Concomitant]
     Route: 065
  17. EFFEXOR XR [Concomitant]
     Route: 065
  18. CALCET [Concomitant]
     Route: 065
  19. LECITHIN [Concomitant]
     Route: 065
  20. BILBERRY [Concomitant]
     Route: 065
  21. BETA CAROTENE [Concomitant]
     Route: 065
  22. LYSINE HYDROCHLORIDE [Concomitant]
     Route: 065
  23. DIMETHYL SULFONE [Concomitant]
     Route: 065
  24. VITAMIN A [Concomitant]
     Route: 065
  25. UBIDECARENONE [Concomitant]
     Route: 065
  26. CHROMIUM PICOLINATE [Concomitant]
     Route: 065
  27. FOLIC ACID [Concomitant]
     Route: 065
  28. ICAPS [Concomitant]
     Route: 065
  29. CYSTEX [Concomitant]
     Route: 065
  30. [THERAPY UNSPECIFIED] [Concomitant]
     Route: 065
  31. OREGANO OIL [Concomitant]
     Route: 065
  32. XANTHOPHYLL [Concomitant]
     Route: 065
  33. MAGNESIUM (UNSPECIFIED) [Concomitant]
     Route: 065
  34. ECHINACEA (UNSPECIFIED) [Concomitant]
     Route: 065
  35. GOLDENSEAL [Concomitant]
     Route: 065
  36. ZINC (UNSPECIFIED) [Concomitant]
     Route: 065
  37. [THERAPY UNSPECIFIED] [Concomitant]
     Route: 065
  38. DIOVAN [Concomitant]
     Route: 065
  39. FUROSEMIDE [Concomitant]
     Route: 065
  40. POTASSIUM CHLORIDE [Concomitant]
     Route: 065
  41. LASIX [Concomitant]
     Route: 065
  42. LISINOPRIL [Concomitant]
     Route: 065
  43. CHLORDIAZEPOXIDE [Concomitant]
     Route: 065
  44. AMOXICILLIN [Concomitant]
     Route: 065
  45. ACETAMINOPHEN AND PROPOXYPHENE NAPSYLATE [Concomitant]
     Route: 065
  46. AMOXI/CLAV [Concomitant]
     Route: 065
  47. DIFLUCAN [Concomitant]
     Route: 065
  48. ALPRAZOLAM [Concomitant]
     Route: 065

REACTIONS (4)
  - ARTHROPATHY [None]
  - CHEST PAIN [None]
  - ISCHAEMIC STROKE [None]
  - SPEECH DISORDER [None]
